FAERS Safety Report 5161027-8 (Version None)
Quarter: 2006Q4

REPORT INFORMATION
  Report Type: 
  Country: None (occurrence: None)
  Receive Date: 20061130
  Receipt Date: 20061114
  Transmission Date: 20070319
  Serious: Yes (Death)
  Sender: FDA-Public Use
  Company Number: JP-BAYER-200615745GDS

PATIENT
  Age: 65 Year
  Sex: Female
  Weight: 55 kg

DRUGS (5)
  1. CIPROFLOXACIN HYDROCHLORIDE [Suspect]
     Indication: DRUG USE FOR UNKNOWN INDICATION
     Route: 065
  2. PANIPENEM [Suspect]
     Indication: DRUG USE FOR UNKNOWN INDICATION
     Route: 065
  3. MINOCYCLINE HCL [Concomitant]
     Indication: DRUG USE FOR UNKNOWN INDICATION
     Route: 065
  4. CEFTAZIDIME [Concomitant]
     Indication: DRUG USE FOR UNKNOWN INDICATION
     Route: 065
  5. FOSFLUCONAZOLE [Concomitant]
     Indication: DRUG USE FOR UNKNOWN INDICATION
     Route: 065

REACTIONS (5)
  - CANDIDIASIS [None]
  - ESCHERICHIA INFECTION [None]
  - PSEUDOMONAL SEPSIS [None]
  - RESPIRATORY ARREST [None]
  - STAPHYLOCOCCAL BACTERAEMIA [None]
